FAERS Safety Report 5281296-3 (Version None)
Quarter: 2007Q1

REPORT INFORMATION
  Report Type: 
  Country: None (occurrence: None)
  Receive Date: 20061221
  Receipt Date: 20051118
  Transmission Date: 20070707
  Serious: No
  Sender: FDA-Public Use
  Company Number: SP00724

PATIENT
  Age: 43 Year
  Sex: Male
  Weight: 94.3482 kg

DRUGS (4)
  1. XIFAXAN [Suspect]
     Indication: INTESTINAL FUNCTIONAL DISORDER
     Dosage: 400MG/TID, ORAL
     Route: 048
     Dates: start: 20051112, end: 20051113
  2. MOTILIUM [Concomitant]
  3. PREVACID [Concomitant]
  4. BENICAR [Concomitant]

REACTIONS (3)
  - HYPERHIDROSIS [None]
  - THROAT IRRITATION [None]
  - THROAT TIGHTNESS [None]
